FAERS Safety Report 11089968 (Version 1)
Quarter: 2015Q2

REPORT INFORMATION
  Report Type: Spontaneous
  Country: CH (occurrence: CH)
  Receive Date: 20150505
  Receipt Date: 20150505
  Transmission Date: 20150821
  Serious: Yes (Hospitalization, Other)
  Sender: FDA-Public Use
  Company Number: CH-ELI_LILLY_AND_COMPANY-CH201504008853

PATIENT
  Age: 82 Year
  Sex: Female

DRUGS (11)
  1. SIMCORA [Concomitant]
     Active Substance: SIMVASTATIN
     Indication: DYSLIPIDAEMIA
     Dosage: 40 MG, QD
     Route: 048
     Dates: end: 20150317
  2. ATORVASTATIN [Suspect]
     Active Substance: ATORVASTATIN
     Indication: PRODUCT USED FOR UNKNOWN INDICATION
     Route: 065
  3. PROLIA [Concomitant]
     Active Substance: DENOSUMAB
     Indication: OSTEOPOROSIS
     Dosage: 60 MG, UNK
     Route: 058
     Dates: start: 20150121
  4. TRAMADOL [Concomitant]
     Active Substance: TRAMADOL
     Indication: PAIN
     Dosage: 12.5 MG, TID
     Route: 048
     Dates: start: 20150324, end: 20150327
  5. ZYPREXA [Suspect]
     Active Substance: OLANZAPINE
     Indication: HALLUCINATION
     Dosage: 2.5 MG, BID
     Route: 048
     Dates: start: 20150209, end: 20150313
  6. CIPRALEX [Suspect]
     Active Substance: ESCITALOPRAM OXALATE
     Indication: DEPRESSION SUICIDAL
     Dosage: 5 MG, QD
     Route: 048
     Dates: start: 201409, end: 20150317
  7. ENOXAPARIN SODIUM. [Concomitant]
     Active Substance: ENOXAPARIN SODIUM
     Indication: THROMBOSIS PROPHYLAXIS
     Dosage: 40 MG, QD
     Route: 058
     Dates: start: 20150317
  8. ZYPREXA [Suspect]
     Active Substance: OLANZAPINE
     Dosage: 2.5 MG, BID
     Route: 048
     Dates: start: 20150314, end: 20150316
  9. ATACAND [Concomitant]
     Active Substance: CANDESARTAN CILEXETIL
     Indication: ESSENTIAL HYPERTENSION
     Dosage: 8 MG, QD
     Route: 048
  10. PREDNISONE. [Concomitant]
     Active Substance: PREDNISONE
     Indication: POLYMYALGIA RHEUMATICA
     Dosage: 15 MG, QD
     Route: 048
     Dates: start: 20150121
  11. EUTHYROX [Concomitant]
     Active Substance: LEVOTHYROXINE SODIUM
     Indication: HYPOTHYROIDISM
     Dosage: 100 UG, QD
     Route: 048

REACTIONS (20)
  - Depressed level of consciousness [Unknown]
  - Ultrasound abdomen abnormal [Unknown]
  - Fall [Unknown]
  - Pyrexia [Unknown]
  - Clavicle fracture [Unknown]
  - Blood alkaline phosphatase increased [Recovered/Resolved]
  - Hyperbilirubinaemia [Recovered/Resolved]
  - Hepatitis [Unknown]
  - Gamma-glutamyltransferase increased [Not Recovered/Not Resolved]
  - Hyperammonaemia [Unknown]
  - Somnolence [Unknown]
  - Lethargy [Unknown]
  - C-reactive protein increased [Unknown]
  - Alanine aminotransferase increased [Recovered/Resolved]
  - Psychomotor retardation [Recovered/Resolved]
  - Gallbladder disorder [Unknown]
  - Cogwheel rigidity [Unknown]
  - Aspartate aminotransferase increased [Recovered/Resolved]
  - Blood urea increased [Unknown]
  - Biliary dilatation [Unknown]

NARRATIVE: CASE EVENT DATE: 201503
